FAERS Safety Report 20665890 (Version 2)
Quarter: 2022Q2

REPORT INFORMATION
  Report Type: Spontaneous
  Country: US (occurrence: US)
  Receive Date: 20220402
  Receipt Date: 20220412
  Transmission Date: 20220721
  Serious: No
  Sender: FDA-Public Use
  Company Number: US-TEVA-2022-US-2014870

PATIENT
  Age: 52 Year
  Sex: Male

DRUGS (4)
  1. CLONAZEPAM [Suspect]
     Active Substance: CLONAZEPAM
     Indication: Hypertension
     Dosage: 1 MILLIGRAM DAILY;
     Route: 065
     Dates: start: 20120807
  2. CLONAZEPAM [Suspect]
     Active Substance: CLONAZEPAM
     Indication: Anxiety
  3. CLONAZEPAM [Suspect]
     Active Substance: CLONAZEPAM
     Indication: Seizure
  4. ATIVAN [Concomitant]
     Active Substance: LORAZEPAM

REACTIONS (2)
  - Product use in unapproved indication [Unknown]
  - Therapeutic product effect decreased [Unknown]
